FAERS Safety Report 9514504 (Version 2)
Quarter: 2013Q4

REPORT INFORMATION
  Report Type: Report from Study
  Country: US (occurrence: US)
  Receive Date: 20130911
  Receipt Date: 20131029
  Transmission Date: 20140711
  Serious: Yes (Other)
  Sender: FDA-Public Use
  Company Number: US-ROCHE-1271711

PATIENT
  Age: 60 Year
  Sex: Female

DRUGS (6)
  1. HERCEPTIN [Suspect]
     Indication: BREAST CANCER METASTATIC
     Dosage: 1L DOSE, EVERY 2
     Route: 065
  2. HERCEPTIN [Suspect]
     Dosage: 2LDOSE
     Route: 065
  3. HERCEPTIN [Suspect]
     Dosage: 3L DOSE
     Route: 065
  4. XELODA [Suspect]
     Indication: BREAST CANCER METASTATIC
     Route: 065
  5. FASLODEX [Concomitant]
     Dosage: 1L
     Route: 065
  6. ABRAXANE [Concomitant]
     Dosage: 3L
     Route: 065

REACTIONS (3)
  - Disease progression [Unknown]
  - Drug dose omission [Unknown]
  - Cardiotoxicity [Unknown]
